FAERS Safety Report 6243397-2 (Version None)
Quarter: 2009Q2

REPORT INFORMATION
  Report Type: 
  Country: None (occurrence: None)
  Receive Date: 20090622
  Receipt Date: 20090622
  Transmission Date: 20091009
  Serious: Yes (Other)
  Sender: FDA-Public Use
  Company Number: None

PATIENT
  Age: 46 Year
  Sex: Female
  Weight: 49.8957 kg

DRUGS (1)
  1. ZICAM COLD REMEDY ZICAM [Suspect]
     Indication: NASOPHARYNGITIS
     Dosage: 1 SQUIRT PER NOSTRIL ONCE NASAL
     Route: 045
     Dates: start: 20060218, end: 20060218

REACTIONS (5)
  - AGEUSIA [None]
  - ANOSMIA [None]
  - EMOTIONAL DISTRESS [None]
  - INJURY [None]
  - NASAL DISCOMFORT [None]
